FAERS Safety Report 23826891 (Version 1)
Quarter: 2024Q2

REPORT INFORMATION
  Report Type: Spontaneous
  Country: BE (occurrence: BE)
  Receive Date: 20240507
  Receipt Date: 20240507
  Transmission Date: 20240715
  Serious: Yes (Hospitalization)
  Sender: FDA-Public Use
  Company Number: None

PATIENT
  Age: 79 Year
  Sex: Female

DRUGS (1)
  1. JARDIANCE [Suspect]
     Active Substance: EMPAGLIFLOZIN
     Indication: Type 2 diabetes mellitus
     Route: 048
     Dates: start: 20211027

REACTIONS (5)
  - Urinary tract candidiasis [Recovering/Resolving]
  - Pathogen resistance [Recovering/Resolving]
  - Systemic candida [Recovering/Resolving]
  - Candida sepsis [Recovering/Resolving]
  - Urinary tract candidiasis [Recovering/Resolving]
